FAERS Safety Report 12985931 (Version 1)
Quarter: 2016Q4

REPORT INFORMATION
  Report Type: Spontaneous
  Country: FR (occurrence: FR)
  Receive Date: 20161130
  Receipt Date: 20161130
  Transmission Date: 20170207
  Serious: Yes (Hospitalization, Other)
  Sender: FDA-Public Use
  Company Number: FR-ABBVIE-16K-056-1788064-00

PATIENT
  Age: 83 Year
  Sex: Female
  Weight: 32 kg

DRUGS (6)
  1. AMLOR [Concomitant]
     Active Substance: AMLODIPINE BESYLATE
     Indication: PRODUCT USED FOR UNKNOWN INDICATION
  2. EUPRESSYL [Concomitant]
     Active Substance: URAPIDIL
     Indication: PRODUCT USED FOR UNKNOWN INDICATION
  3. PARACETAMOL [Concomitant]
     Active Substance: ACETAMINOPHEN
     Indication: PRODUCT USED FOR UNKNOWN INDICATION
  4. HUMIRA [Suspect]
     Active Substance: ADALIMUMAB
     Indication: RHEUMATOID ARTHRITIS
     Route: 058
  5. IXPRIM [Concomitant]
     Active Substance: ACETAMINOPHEN\TRAMADOL HYDROCHLORIDE
     Indication: PRODUCT USED FOR UNKNOWN INDICATION
  6. FOLIC ACID. [Concomitant]
     Active Substance: FOLIC ACID
     Indication: PRODUCT USED FOR UNKNOWN INDICATION
     Dosage: AS REQUIRED

REACTIONS (9)
  - Deformity [Unknown]
  - Thrombocytopenia [Unknown]
  - Inappropriate antidiuretic hormone secretion [Unknown]
  - Protein total decreased [Unknown]
  - Cerebrovascular accident [Unknown]
  - Thalamus haemorrhage [Unknown]
  - Hypertension [Not Recovered/Not Resolved]
  - Blood folate increased [Unknown]
  - Lymphopenia [Unknown]

NARRATIVE: CASE EVENT DATE: 201609
